FAERS Safety Report 25436448 (Version 2)
Quarter: 2025Q3

REPORT INFORMATION
  Report Type: Report from Study
  Country: US (occurrence: US)
  Receive Date: 20250614
  Receipt Date: 20250802
  Transmission Date: 20251020
  Serious: Yes (Hospitalization)
  Sender: ALEXION PHARMACEUTICALS
  Company Number: US-AstraZeneca-CH-00890256A

PATIENT
  Sex: Male

DRUGS (1)
  1. CAPIVASERTIB [Suspect]
     Active Substance: CAPIVASERTIB
     Indication: Prostate cancer
     Dosage: 400 MILLIGRAM, Q12H
     Dates: start: 20250423

REACTIONS (1)
  - Dizziness [Unknown]
